FAERS Safety Report 6196534-2 (Version None)
Quarter: 2009Q2

REPORT INFORMATION
  Report Type: 
  Country: None (occurrence: None)
  Receive Date: 20090520
  Receipt Date: 20090318
  Transmission Date: 20091009
  Serious: No
  Sender: FDA-Public Use
  Company Number: US-ABBOTT-09P-163-0563840-00

PATIENT
  Sex: Female
  Weight: 75.5 kg

DRUGS (2)
  1. ZEMPLAR [Suspect]
     Indication: HYPERPARATHYROIDISM
     Dosage: 4.5 MCG 3 TIMES A WEEK
     Route: 042
     Dates: start: 20080601, end: 20081020
  2. FOSLO [Concomitant]
     Indication: DRUG USE FOR UNKNOWN INDICATION
     Dosage: 2 WITH MEALS

REACTIONS (1)
  - DYSGEUSIA [None]
